FAERS Safety Report 10500204 (Version 2)
Quarter: 2014Q4

REPORT INFORMATION
  Report Type: Spontaneous
  Country: US (occurrence: US)
  Receive Date: 20141006
  Receipt Date: 20141006
  Transmission Date: 20150528
  Serious: No
  Sender: FDA-Public Use
  Company Number: US-AMGEN INC.-USASP2014039956

PATIENT
  Age: 65 Year
  Sex: Female
  Weight: 115 kg

DRUGS (2)
  1. PROLIA [Suspect]
     Active Substance: DENOSUMAB
     Indication: OSTEOPOROSIS POSTMENOPAUSAL
     Dosage: 60 MG, Q6MO
     Route: 065
     Dates: start: 20131227
  2. CALCIUM + VITAMIN D                /01483701/ [Concomitant]
     Active Substance: CALCIUM\VITAMIN D

REACTIONS (2)
  - Adverse reaction [Unknown]
  - Peripheral swelling [Unknown]

NARRATIVE: CASE EVENT DATE: 2013
